FAERS Safety Report 25299253 (Version 1)
Quarter: 2025Q2

REPORT INFORMATION
  Report Type: Spontaneous
  Country: IT (occurrence: IT)
  Receive Date: 20250512
  Receipt Date: 20250512
  Transmission Date: 20250716
  Serious: Yes (Death, Other)
  Sender: AMGEN
  Company Number: IT-AMGEN-ITASP2025091018

PATIENT
  Age: 72 Year
  Sex: Male

DRUGS (5)
  1. ECULIZUMAB [Suspect]
     Active Substance: ECULIZUMAB
     Indication: Myasthenia gravis crisis
     Dosage: 900 MILLIGRAM, QWK, 4 INFUSIONS
     Route: 065
  2. ECULIZUMAB [Suspect]
     Active Substance: ECULIZUMAB
     Dosage: 1200 MILLIGRAM, Q2WK
     Route: 065
  3. EFGARTIGIMOD ALFA [Concomitant]
     Active Substance: EFGARTIGIMOD ALFA
  4. RIFAMPIN [Concomitant]
     Active Substance: RIFAMPIN
     Indication: Meningococcal infection
     Dosage: 600 MILLIGRAM, QD
  5. AZATHIOPRINE [Concomitant]
     Active Substance: AZATHIOPRINE
     Indication: Immunosuppressant drug therapy

REACTIONS (4)
  - Systemic infection [Fatal]
  - Neuromyopathy [Unknown]
  - Drug ineffective for unapproved indication [Unknown]
  - Off label use [Unknown]
